FAERS Safety Report 7760148-0 (Version None)
Quarter: 2011Q3

REPORT INFORMATION
  Report Type: 
  Country: None (occurrence: None)
  Receive Date: 20110919
  Receipt Date: 20110908
  Transmission Date: 20111222
  Serious: Yes (Other)
  Sender: FDA-Public Use
  Company Number: CA-JNJFOC-20110613183

PATIENT
  Sex: Female
  Weight: 58 kg

DRUGS (5)
  1. MICARDIS [Concomitant]
  2. REMICADE [Suspect]
     Route: 042
  3. REMICADE [Suspect]
     Route: 042
     Dates: start: 20090408
  4. REMICADE [Suspect]
     Indication: RHEUMATOID ARTHRITIS
     Route: 042
     Dates: start: 20110526
  5. ZOLEDRONOC ACID [Concomitant]
     Dates: start: 20110511

REACTIONS (2)
  - DRUG INEFFECTIVE [None]
  - TUBERCULOSIS [None]
